FAERS Safety Report 11352168 (Version 1)
Quarter: 2015Q3

REPORT INFORMATION
  Report Type: Spontaneous
  Country: IT (occurrence: IT)
  Receive Date: 20150807
  Receipt Date: 20150807
  Transmission Date: 20151125
  Serious: Yes (Hospitalization)
  Sender: FDA-Public Use
  Company Number: IT-BAYER-2015-223665

PATIENT
  Age: 78 Year
  Sex: Female

DRUGS (7)
  1. AMIODAR [Concomitant]
     Active Substance: AMIODARONE
     Route: 048
  2. ESOMEPRAZOLE [Concomitant]
     Active Substance: ESOMEPRAZOLE
     Route: 048
  3. CARDIOASPIRIN [Suspect]
     Active Substance: ASPIRIN
     Indication: INFARCTION
     Dosage: DAILY DOSE 100 MG
     Route: 048
     Dates: start: 20150213, end: 20150321
  4. BRILIQUE [Suspect]
     Active Substance: TICAGRELOR
     Indication: INFARCTION
     Dosage: 180 MG, UNK
     Route: 048
     Dates: start: 20150213, end: 20150321
  5. METOPROLOL [Concomitant]
     Active Substance: METOPROLOL
     Route: 048
  6. LASIX [Concomitant]
     Active Substance: FUROSEMIDE
     Route: 048
  7. KANRENOL [Concomitant]
     Active Substance: CANRENOATE POTASSIUM
     Route: 048

REACTIONS (1)
  - Subdural haematoma [Recovered/Resolved]

NARRATIVE: CASE EVENT DATE: 20150322
